APPROVED DRUG PRODUCT: AMINOSYN-HBC 7%
Active Ingredient: AMINO ACIDS
Strength: 7% (7GM/100ML)
Dosage Form/Route: INJECTABLE;INJECTION
Application: N019374 | Product #001
Applicant: ICU MEDICAL INC
Approved: Jul 12, 1985 | RLD: No | RS: No | Type: DISCN